FAERS Safety Report 9691840 (Version 1)
Quarter: 2013Q4

REPORT INFORMATION
  Report Type: Spontaneous
  Country: IE (occurrence: IE)
  Receive Date: 20131117
  Receipt Date: 20131117
  Transmission Date: 20140711
  Serious: Yes (Hospitalization)
  Sender: FDA-Public Use
  Company Number: IE-ASTRAZENECA-2013SE83578

PATIENT
  Age: 253 Day
  Sex: Female

DRUGS (3)
  1. SYNAGIS [Suspect]
     Indication: PREMATURE BABY
     Route: 030
     Dates: start: 20131008
  2. GALFER [Concomitant]
  3. ABIDEC [Concomitant]

REACTIONS (2)
  - Oral mucosal blistering [Unknown]
  - Pyrexia [Unknown]
